FAERS Safety Report 6787823-9 (Version None)
Quarter: 2010Q2

REPORT INFORMATION
  Report Type: 
  Country: None (occurrence: None)
  Receive Date: 20100623
  Receipt Date: 20080617
  Transmission Date: 20101027
  Serious: No
  Sender: FDA-Public Use
  Company Number: US-PFIZER INC-2007066269

PATIENT
  Sex: Female

DRUGS (4)
  1. DIFLUCAN [Suspect]
     Indication: CANDIDIASIS
  2. DIFLUCAN [Suspect]
     Indication: FUNGAL INFECTION
  3. FLUCONAZOLE [Suspect]
     Indication: FUNGAL INFECTION
  4. GARLIC [Suspect]
     Indication: FUNGAL INFECTION
     Dates: start: 20030101

REACTIONS (2)
  - BLOOD DISORDER [None]
  - DRUG INEFFECTIVE [None]
